FAERS Safety Report 20719864 (Version 1)
Quarter: 2022Q2

REPORT INFORMATION
  Report Type: Spontaneous
  Country: BR (occurrence: BR)
  Receive Date: 20220418
  Receipt Date: 20220418
  Transmission Date: 20220720
  Serious: Yes (Other)
  Sender: FDA-Public Use
  Company Number: BR-JUBILANT CADISTA PHARMACEUTICALS-2022JUB00108

PATIENT
  Age: 76 Year
  Sex: Male

DRUGS (3)
  1. ALENDRONATE [Suspect]
     Active Substance: ALENDRONATE SODIUM
     Indication: Osteitis deformans
     Dosage: 70 MG, 1X/WEEK
     Route: 065
  2. ALENDRONATE [Suspect]
     Active Substance: ALENDRONATE SODIUM
     Dosage: 210 MG, 1X/WEEK
     Route: 065
  3. ALENDRONATE [Suspect]
     Active Substance: ALENDRONATE SODIUM
     Dosage: 70 MG, 1X/WEEK
     Route: 065

REACTIONS (1)
  - Drug-induced liver injury [Not Recovered/Not Resolved]
